FAERS Safety Report 9239569 (Version 1)
Quarter: 2013Q2

REPORT INFORMATION
  Report Type: Spontaneous
  Country: US (occurrence: US)
  Receive Date: 20130418
  Receipt Date: 20130418
  Transmission Date: 20140414
  Serious: No
  Sender: FDA-Public Use
  Company Number: US-SANOFI-AVENTIS-2012SA033662

PATIENT
  Age: 49 Year
  Sex: Male
  Weight: 110 kg

DRUGS (7)
  1. LOVENOX [Suspect]
     Indication: DEEP VEIN THROMBOSIS
     Route: 065
     Dates: start: 20120417, end: 20120417
  2. ENOXAPARIN SODIUM [Suspect]
     Indication: DEEP VEIN THROMBOSIS
     Route: 065
     Dates: start: 20120417, end: 20120423
  3. COUMADIN [Concomitant]
  4. METFORMIN [Concomitant]
     Indication: TYPE 2 DIABETES MELLITUS
     Dates: start: 2006
  5. PRAVACHOL [Concomitant]
     Indication: HYPERLIPIDAEMIA
     Dates: start: 2008
  6. ASA [Concomitant]
  7. TADALAFIL [Concomitant]
     Dates: start: 2007

REACTIONS (2)
  - Aspartate aminotransferase increased [Recovered/Resolved]
  - Alanine aminotransferase increased [Recovered/Resolved]
